APPROVED DRUG PRODUCT: ZOLPIDEM TARTRATE
Active Ingredient: ZOLPIDEM TARTRATE
Strength: 10MG
Dosage Form/Route: TABLET;ORAL
Application: A078184 | Product #002
Applicant: INVAGEN PHARMACEUTICALS INC
Approved: Sep 7, 2007 | RLD: No | RS: No | Type: DISCN